FAERS Safety Report 15785720 (Version 1)
Quarter: 2019Q1

REPORT INFORMATION
  Report Type: Spontaneous
  Country: ES (occurrence: ES)
  Receive Date: 20190103
  Receipt Date: 20190103
  Transmission Date: 20190417
  Serious: Yes (Hospitalization)
  Sender: FDA-Public Use
  Company Number: ES-ABBVIE-18S-144-2606434-00

PATIENT
  Age: 72 Year
  Sex: Male
  Weight: 70 kg

DRUGS (2)
  1. ROTIGOTINE [Suspect]
     Active Substance: ROTIGOTINE
     Indication: PRODUCT USED FOR UNKNOWN INDICATION
     Route: 061
  2. DUODOPA [Suspect]
     Active Substance: CARBIDOPA\LEVODOPA
     Indication: PARKINSON^S DISEASE
     Route: 050

REACTIONS (5)
  - Anxiety [Not Recovered/Not Resolved]
  - Nervousness [Recovering/Resolving]
  - Suicidal ideation [Recovering/Resolving]
  - Impulse-control disorder [Not Recovered/Not Resolved]
  - Dopamine dysregulation syndrome [Not Recovered/Not Resolved]
